FAERS Safety Report 7989194-9 (Version None)
Quarter: 2011Q4

REPORT INFORMATION
  Report Type: 
  Country: None (occurrence: None)
  Receive Date: 20111215
  Receipt Date: 20111215
  Transmission Date: 20120403
  Serious: No
  Sender: FDA-Public Use
  Company Number: None

PATIENT

DRUGS (1)
  1. FENTANYL [Suspect]
     Dosage: INJECTABLE
     Route: 042

REACTIONS (3)
  - MEDICATION ERROR [None]
  - PRODUCT PACKAGING ISSUE [None]
  - DRUG DISPENSING ERROR [None]
